FAERS Safety Report 17131555 (Version 1)
Quarter: 2019Q4

REPORT INFORMATION
  Report Type: Spontaneous
  Country: US (occurrence: US)
  Receive Date: 20191209
  Receipt Date: 20191209
  Transmission Date: 20200122
  Serious: No
  Sender: FDA-Public Use
  Company Number: US-UCBSA-2016048285

PATIENT
  Age: 39 Year
  Sex: Female

DRUGS (1)
  1. CIMZIA [Suspect]
     Active Substance: CERTOLIZUMAB PEGOL
     Indication: PSORIATIC ARTHROPATHY
     Dosage: 400 MG (2 ML), EV 4 WEEKS
     Route: 058
     Dates: start: 20161113, end: 20161128

REACTIONS (4)
  - Pharyngeal swelling [Unknown]
  - Pain [Unknown]
  - Hypersensitivity [Unknown]
  - Pyrexia [Unknown]

NARRATIVE: CASE EVENT DATE: 20161207
